FAERS Safety Report 21059337 (Version 1)
Quarter: 2022Q3

REPORT INFORMATION
  Report Type: Spontaneous
  Country: BR (occurrence: BR)
  Receive Date: 20220708
  Receipt Date: 20220708
  Transmission Date: 20221027
  Serious: Yes (Other)
  Sender: FDA-Public Use
  Company Number: BR-ABBOTT-2022A-1350729

PATIENT
  Sex: Male
  Weight: 68 kg

DRUGS (2)
  1. DEPAKOTE ER [Suspect]
     Active Substance: DIVALPROEX SODIUM
     Indication: Myoclonus
     Dosage: DAILY DOSE: 1000 MG; ONE IN THE MORNING AND ONE AT NIGHT
     Route: 048
     Dates: start: 2016
  2. DEPAKOTE ER [Suspect]
     Active Substance: DIVALPROEX SODIUM
     Indication: Tremor

REACTIONS (3)
  - Seizure [Unknown]
  - Inappropriate schedule of product administration [Unknown]
  - Product use in unapproved indication [Unknown]
